FAERS Safety Report 8481074-8 (Version None)
Quarter: 2012Q3

REPORT INFORMATION
  Report Type: 
  Country: None (occurrence: None)
  Receive Date: 20120702
  Receipt Date: 20120627
  Transmission Date: 20120928
  Serious: Yes (Death)
  Sender: FDA-Public Use
  Company Number: PHHY2012BR055395

PATIENT
  Sex: Male

DRUGS (4)
  1. LITHIUM CARBONATE [Concomitant]
     Indication: DEPRESSION
     Route: 048
  2. EXELON [Suspect]
     Indication: DEMENTIA ALZHEIMER'S TYPE
     Dosage: 9.5 MG\24HRS
     Route: 062
  3. SEROQUEL [Concomitant]
     Indication: CEREBROVASCULAR ACCIDENT PROPHYLAXIS
     Dosage: 1 DF, BID
  4. LOPIGREL [Concomitant]
     Dosage: 1 DF, QD

REACTIONS (2)
  - CARDIO-RESPIRATORY ARREST [None]
  - RESPIRATORY FAILURE [None]
